FAERS Safety Report 15296133 (Version 2)
Quarter: 2018Q3

REPORT INFORMATION
  Report Type: Spontaneous
  Country: JP (occurrence: JP)
  Receive Date: 20180820
  Receipt Date: 20180824
  Transmission Date: 20181010
  Serious: Yes (Death)
  Sender: FDA-Public Use
  Company Number: JP-PFIZER INC-2018333271

PATIENT
  Age: 50 Year
  Sex: Male

DRUGS (7)
  1. VORICONAZOLE. [Suspect]
     Active Substance: VORICONAZOLE
     Indication: ANTIFUNGAL PROPHYLAXIS
     Dosage: 400 MG, DAILY
  2. MICAFUNGIN [Suspect]
     Active Substance: MICAFUNGIN
     Indication: FUSARIUM INFECTION
     Dosage: 300 MG, DAILY
  3. VORICONAZOLE. [Suspect]
     Active Substance: VORICONAZOLE
     Indication: ANTIFUNGAL PROPHYLAXIS
  4. METHOTREXATE. [Concomitant]
     Active Substance: METHOTREXATE
     Indication: CENTRAL NERVOUS SYSTEM NEOPLASM
     Dosage: UNK
  5. AMPHOTERICIN B, LIPOSOME [Suspect]
     Active Substance: AMPHOTERICIN B
     Indication: FUSARIUM INFECTION
     Dosage: 5 MG/KG, DAILY
  6. MICAFUNGIN [Suspect]
     Active Substance: MICAFUNGIN
     Dosage: 3 MG, DAILY
  7. DASATINIB. [Concomitant]
     Active Substance: DASATINIB
     Indication: CENTRAL NERVOUS SYSTEM NEOPLASM
     Dosage: UNK
     Route: 048

REACTIONS (2)
  - Fusarium infection [Fatal]
  - Drug ineffective [Fatal]
